FAERS Safety Report 6134257-6 (Version None)
Quarter: 2009Q1

REPORT INFORMATION
  Report Type: 
  Country: None (occurrence: None)
  Receive Date: 20090325
  Receipt Date: 20090310
  Transmission Date: 20090719
  Serious: Yes (Life-Threatening, Hospitalization)
  Sender: FDA-Public Use
  Company Number: 2009S1004849

PATIENT
  Age: 52 Year
  Sex: Male

DRUGS (18)
  1. BACLOFEN [Suspect]
     Indication: MUSCLE SPASTICITY
     Dosage: 25 MG;ORAL
     Route: 048
  2. DIPIPERON (PIPAMPERONE HYDROCHLORIDE) [Suspect]
     Indication: CEREBROVASCULAR ACCIDENT
     Dosage: 40 MG;ORAL
     Route: 048
  3. CLONAZEPAM [Suspect]
     Indication: EPILEPSY
     Dosage: 1 MG;ORAL
     Route: 048
  4. TORSEMIDE [Concomitant]
  5. CAPTOPRIL [Concomitant]
  6. HYDROCHLOROTHIAZIDE [Concomitant]
  7. BEZAFIBRATE [Concomitant]
  8. AGGRENOX [Concomitant]
  9. TRAMADOL HCL [Concomitant]
  10. SPIRONO [Concomitant]
  11. TAMSULOSIN HCL [Concomitant]
  12. IMBUN /00109201/ [Concomitant]
  13. PREGABALIN [Concomitant]
  14. CARBAMAZEPINE [Concomitant]
  15. NULYTELY [Concomitant]
  16. METAMIZOLE [Concomitant]
  17. INSULIN [Concomitant]
  18. PANTOZOL [Concomitant]

REACTIONS (2)
  - RESPIRATORY FAILURE [None]
  - SOMNOLENCE [None]
